FAERS Safety Report 8887080 (Version 1)
Quarter: 2012Q4

REPORT INFORMATION
  Report Type: 
  Country: GB (occurrence: GB)
  Receive Date: 20121101
  Receipt Date: 20121101
  Transmission Date: 20130627
  Serious: Yes (Other)
  Sender: FDA-Public Use
  Company Number: PHFR2012GB005662

PATIENT

DRUGS (2)
  1. AFINITOR [Suspect]
  2. METRONIDAZOLE [Interacting]

REACTIONS (2)
  - Abdominal abscess [Unknown]
  - Drug interaction [Unknown]
